FAERS Safety Report 18501189 (Version 5)
Quarter: 2020Q4

REPORT INFORMATION
  Report Type: Spontaneous
  Country: GB (occurrence: GB)
  Receive Date: 20201113
  Receipt Date: 20201230
  Transmission Date: 20210114
  Serious: Yes (Hospitalization, Other)
  Sender: FDA-Public Use
  Company Number: GB-MYLANLABS-2020M1093547

PATIENT
  Age: 73 Year
  Sex: Male

DRUGS (1)
  1. CLOZARIL [Suspect]
     Active Substance: CLOZAPINE
     Indication: SCHIZOPHRENIA
     Dosage: UNK
     Route: 048
     Dates: start: 20140730, end: 202011

REACTIONS (11)
  - Heart rate decreased [Unknown]
  - White blood cell count decreased [Recovering/Resolving]
  - Confusional state [Unknown]
  - Bradycardia [Unknown]
  - Haemoglobin decreased [Not Recovered/Not Resolved]
  - Blood pressure decreased [Unknown]
  - Schizophrenia [Unknown]
  - Mental impairment [Unknown]
  - Malaise [Unknown]
  - Cardiac disorder [Unknown]
  - Neutrophil count decreased [Not Recovered/Not Resolved]

NARRATIVE: CASE EVENT DATE: 20200929
